FAERS Safety Report 9009395 (Version 2)
Quarter: 2013Q1

REPORT INFORMATION
  Report Type: Report from Study
  Country: JP (occurrence: JP)
  Receive Date: 20130111
  Receipt Date: 20130220
  Transmission Date: 20140127
  Serious: Yes (Other)
  Sender: FDA-Public Use
  Company Number: JP-ASTELLAS-2012JP010042

PATIENT
  Age: 84 Year
  Sex: Male

DRUGS (4)
  1. MIRABEGRON [Suspect]
     Indication: HYPERTONIC BLADDER
     Dosage: 50 MG, UID/QD
     Route: 048
     Dates: start: 20120927, end: 20121001
  2. MIRABEGRON [Suspect]
     Dosage: UNK
     Route: 048
     Dates: start: 20121105
  3. URIEF [Concomitant]
     Indication: BENIGN PROSTATIC HYPERPLASIA
     Dosage: 8 MG, UNKNOWN/D
     Route: 048
     Dates: start: 20120322
  4. CELECOX [Concomitant]
     Indication: BACK PAIN
     Dosage: 100 MG, UNKNOWN/D
     Route: 048
     Dates: start: 20111208

REACTIONS (1)
  - Atrial fibrillation [Recovering/Resolving]
